FAERS Safety Report 18949301 (Version 2)
Quarter: 2021Q1

REPORT INFORMATION
  Report Type: Report from Study
  Country: US (occurrence: US)
  Receive Date: 20210227
  Receipt Date: 20210309
  Transmission Date: 20210420
  Serious: Yes (Other)
  Sender: FDA-Public Use
  Company Number: US-UCBSA-2021008794

PATIENT
  Sex: Female
  Weight: 46.2 kg

DRUGS (1)
  1. LEVETIRACETAM. [Suspect]
     Active Substance: LEVETIRACETAM
     Indication: EPILEPSY
     Dosage: 1000 MILLIGRAM, 2X/DAY (BID)

REACTIONS (6)
  - Generalised tonic-clonic seizure [Unknown]
  - Vomiting [Unknown]
  - Decreased appetite [Unknown]
  - Meniere^s disease [Unknown]
  - Maternal exposure during pregnancy [Unknown]
  - Gastric disorder [Unknown]

NARRATIVE: CASE EVENT DATE: 2019
